FAERS Safety Report 22191510 (Version 1)
Quarter: 2023Q2

REPORT INFORMATION
  Report Type: Report from Study
  Country: US (occurrence: US)
  Receive Date: 20230410
  Receipt Date: 20230410
  Transmission Date: 20230721
  Serious: Yes (Hospitalization, Other)
  Sender: FDA-Public Use
  Company Number: US-GILEAD-2023-0623296

PATIENT
  Age: 6 Year
  Sex: Male

DRUGS (6)
  1. AZTREONAM LYSINE [Suspect]
     Active Substance: AZTREONAM LYSINE
     Indication: Cystic fibrosis
     Dosage: 1 DOSAGE FORM, TID, ~INHALE 1 VIAL THREE TIMES DAILY FOR 28 DAYS ON AND 28 DAYS OFF
     Route: 055
     Dates: start: 20220714
  2. AZTREONAM LYSINE [Suspect]
     Active Substance: AZTREONAM LYSINE
     Indication: Infective pulmonary exacerbation of cystic fibrosis
     Dosage: 75 MG, TID,75MG: INHALE 75MG VIA NEBULIZER 3 TIMES DAILY FOR 28DAYS ON THEN 28 DAYS OFF
     Route: 065
     Dates: start: 20220711
  3. SODIUM CHLORIDE [Concomitant]
     Active Substance: SODIUM CHLORIDE
  4. COLISTIMETHATE SODIUM [Concomitant]
     Active Substance: COLISTIMETHATE SODIUM
     Dosage: 150 MG
  5. SODIUM CHLORIDE [Concomitant]
     Active Substance: SODIUM CHLORIDE
  6. LEVALBUTEROL HYDROCHLORIDE [Concomitant]
     Active Substance: LEVALBUTEROL HYDROCHLORIDE
     Dosage: 3% 4 ML

REACTIONS (2)
  - Seizure [Not Recovered/Not Resolved]
  - Product dose omission in error [Unknown]
